FAERS Safety Report 7721554-3 (Version None)
Quarter: 2011Q3

REPORT INFORMATION
  Report Type: 
  Country: None (occurrence: None)
  Receive Date: 20110825
  Receipt Date: 20110809
  Transmission Date: 20111222
  Serious: Yes (Hospitalization)
  Sender: FDA-Public Use
  Company Number: 2011MA011574

PATIENT
  Age: 79 Year
  Sex: Female

DRUGS (4)
  1. FLUOXETINE [Suspect]
     Indication: DEPRESSION
     Dosage: 60 MG;QD
  2. RANITIDINE [Concomitant]
  3. DIAZEPAM [Concomitant]
  4. LEVOTHYROXINE SODIUM [Concomitant]

REACTIONS (9)
  - NO THERAPEUTIC RESPONSE [None]
  - CONDITION AGGRAVATED [None]
  - HAEMOGLOBIN DECREASED [None]
  - OESOPHAGITIS [None]
  - UPPER GASTROINTESTINAL HAEMORRHAGE [None]
  - DEPRESSION [None]
  - DIVERTICULUM [None]
  - PLATELET FUNCTION TEST ABNORMAL [None]
  - SELF-INJURIOUS IDEATION [None]
